FAERS Safety Report 6454699-9 (Version None)
Quarter: 2009Q4

REPORT INFORMATION
  Report Type: 
  Country: None (occurrence: None)
  Receive Date: 20091124
  Receipt Date: 20091110
  Transmission Date: 20100525
  Serious: Yes (Other)
  Sender: FDA-Public Use
  Company Number: US-JNJFOC-20091105507

PATIENT
  Age: 37 Year
  Sex: Male
  Weight: 122.47 kg

DRUGS (1)
  1. STELARA [Suspect]
     Indication: PSORIASIS
     Route: 058
     Dates: start: 20091001, end: 20091014

REACTIONS (1)
  - CEREBROVASCULAR ACCIDENT [None]
